FAERS Safety Report 21558185 (Version 1)
Quarter: 2022Q4

REPORT INFORMATION
  Report Type: Spontaneous
  Country: US (occurrence: US)
  Receive Date: 20221107
  Receipt Date: 20221107
  Transmission Date: 20230113
  Serious: No
  Sender: FDA-Public Use
  Company Number: US-BRISTOL-MYERS SQUIBB COMPANY-2022-125399

PATIENT
  Age: 67 Year
  Sex: Female
  Weight: 53.97 kg

DRUGS (2)
  1. LENALIDOMIDE [Suspect]
     Active Substance: LENALIDOMIDE
     Indication: Plasma cell myeloma
     Dosage: FREQ: DAILY X 14 DAYS, EVERY 21 DAYS
     Route: 048
     Dates: start: 20221012
  2. LENALIDOMIDE [Suspect]
     Active Substance: LENALIDOMIDE
     Dosage: FREQ: DAILY X 14 DAYS, EVERY 21 DAYS
     Route: 048
     Dates: start: 20221001

REACTIONS (3)
  - Sinusitis [Not Recovered/Not Resolved]
  - COVID-19 [Not Recovered/Not Resolved]
  - Intentional product use issue [Unknown]
